FAERS Safety Report 5894896-4 (Version None)
Quarter: 2008Q3

REPORT INFORMATION
  Report Type: 
  Country: None (occurrence: None)
  Receive Date: 20080924
  Receipt Date: 20080915
  Transmission Date: 20090109
  Serious: Yes (Other)
  Sender: FDA-Public Use
  Company Number: PHHY2008FR21660

PATIENT
  Age: 43 Year
  Sex: Female

DRUGS (1)
  1. AREDIA [Suspect]
     Indication: ANKYLOSING SPONDYLITIS
     Dosage: UNK
     Route: 042

REACTIONS (1)
  - VENOUS THROMBOSIS [None]
